FAERS Safety Report 22267077 (Version 1)
Quarter: 2023Q2

REPORT INFORMATION
  Report Type: Report from Study
  Country: US (occurrence: US)
  Receive Date: 20230428
  Receipt Date: 20230428
  Transmission Date: 20230721
  Serious: Yes (Other)
  Sender: FDA-Public Use
  Company Number: US-GILEAD-2023-0624894

PATIENT
  Age: 65 Year
  Sex: Female

DRUGS (2)
  1. SACITUZUMAB GOVITECAN-HZIY [Suspect]
     Active Substance: SACITUZUMAB GOVITECAN-HZIY
     Indication: Bladder cancer
     Dosage: 500 MG  ONCE WEEKLY ON DAY 1 AND 8 OF A CONTINUOUS 21 DAY TREATMENT CYCLE
     Route: 042
     Dates: start: 20230224
  2. SACITUZUMAB GOVITECAN-HZIY [Suspect]
     Active Substance: SACITUZUMAB GOVITECAN-HZIY
     Dosage: 475 MG  ONCE WEEKLY ON DAY 1 AND 8 OF A CONTINUOUS 21 DAY TREATMENT CYCLE
     Route: 042
     Dates: end: 20230414

REACTIONS (3)
  - Disease progression [Not Recovered/Not Resolved]
  - Incorrect dose administered [Unknown]
  - Drug ineffective [Not Recovered/Not Resolved]
